FAERS Safety Report 6601273-7 (Version None)
Quarter: 2010Q1

REPORT INFORMATION
  Report Type: 
  Country: None (occurrence: None)
  Receive Date: 20100225
  Receipt Date: 20100219
  Transmission Date: 20100710
  Serious: Yes (Other)
  Sender: FDA-Public Use
  Company Number: US-PFIZER INC-2010022200

PATIENT
  Sex: Male

DRUGS (3)
  1. VISTARIL [Suspect]
  2. CLOZAPINE [Suspect]
     Dosage: 25 MG, UNK
  3. CELEXA [Suspect]

REACTIONS (7)
  - DIARRHOEA [None]
  - DRUG LEVEL INCREASED [None]
  - GASTROENTERITIS [None]
  - GRANULOCYTOPENIA [None]
  - ILEUS PARALYTIC [None]
  - PNEUMONIA [None]
  - VOMITING [None]
